FAERS Safety Report 7987092-8 (Version None)
Quarter: 2011Q4

REPORT INFORMATION
  Report Type: 
  Country: None (occurrence: None)
  Receive Date: 20111216
  Receipt Date: 20110314
  Transmission Date: 20120403
  Serious: No
  Sender: FDA-Public Use
  Company Number: US-BRISTOL-MYERS SQUIBB COMPANY-15607120

PATIENT
  Age: 73 Year
  Sex: Female
  Weight: 61 kg

DRUGS (1)
  1. ABILIFY [Suspect]
     Indication: MENTAL DISORDER
     Route: 048

REACTIONS (1)
  - BLOOD GLUCOSE INCREASED [None]
